FAERS Safety Report 7748624-8 (Version None)
Quarter: 2011Q3

REPORT INFORMATION
  Report Type: 
  Country: None (occurrence: None)
  Receive Date: 20110914
  Receipt Date: 20110907
  Transmission Date: 20111222
  Serious: No
  Sender: FDA-Public Use
  Company Number: US-BIOGENIDEC-2011BI034481

PATIENT
  Age: 43 Year
  Sex: Female

DRUGS (4)
  1. TYSABRI [Suspect]
     Indication: MULTIPLE SCLEROSIS
     Route: 042
     Dates: end: 20110101
  2. TYSABRI [Suspect]
     Route: 042
     Dates: end: 20100408
  3. TYSABRI [Suspect]
     Route: 042
     Dates: start: 20080617, end: 20090618
  4. AVONEX [Concomitant]
     Indication: MULTIPLE SCLEROSIS
     Route: 030

REACTIONS (2)
  - PNEUMONIA [None]
  - KIDNEY INFECTION [None]
